FAERS Safety Report 9528185 (Version 1)
Quarter: 2013Q3

REPORT INFORMATION
  Report Type: Spontaneous
  Country: None (occurrence: None)
  Receive Date: 20130913
  Receipt Date: 20130913
  Transmission Date: 20140515
  Serious: Yes (Disabling)
  Sender: FDA-Public Use
  Company Number: AUR-APL-2013-07531

PATIENT
  Age: 25 Year
  Sex: Male
  Weight: 76.65 kg

DRUGS (1)
  1. CITALOPRAM [Suspect]
     Indication: DEPRESSION
     Route: 048
     Dates: start: 20110401, end: 20110414

REACTIONS (2)
  - Libido decreased [None]
  - Sexual dysfunction [None]
